FAERS Safety Report 7944625-5 (Version None)
Quarter: 2011Q4

REPORT INFORMATION
  Report Type: 
  Country: None (occurrence: None)
  Receive Date: 20111122
  Receipt Date: 20110705
  Transmission Date: 20120403
  Serious: Yes (Other)
  Sender: FDA-Public Use
  Company Number: PHHY2011US17907

PATIENT
  Sex: Female

DRUGS (7)
  1. ESTRACE [Concomitant]
  2. PRADAXA [Concomitant]
  3. GILENYA [Suspect]
     Indication: MULTIPLE SCLEROSIS
     Dosage: 0.5 MG, QD, ORAL
     Route: 048
     Dates: start: 20110101
  4. PREDNISONE TAB [Concomitant]
  5. PAXIL [Concomitant]
  6. NEXIUM [Concomitant]
  7. TRAZODONE HCL [Concomitant]

REACTIONS (2)
  - DIARRHOEA [None]
  - HEADACHE [None]
